FAERS Safety Report 11836351 (Version 1)
Quarter: 2015Q4

REPORT INFORMATION
  Report Type: Spontaneous
  Country: US (occurrence: None)
  Receive Date: 20151214
  Receipt Date: 20151214
  Transmission Date: 20160305
  Serious: No
  Sender: FDA-Public Use
  Company Number: None

PATIENT
  Age: 53 Year
  Sex: Female

DRUGS (1)
  1. TECFIDERA [Suspect]
     Active Substance: DIMETHYL FUMARATE
     Indication: MULTIPLE SCLEROSIS
     Dosage: ONE CAPSULE
     Route: 048

REACTIONS (5)
  - Head discomfort [None]
  - Visual impairment [None]
  - Clumsiness [None]
  - Progressive multifocal leukoencephalopathy [None]
  - Nausea [None]

NARRATIVE: CASE EVENT DATE: 20151209
